FAERS Safety Report 6749411-X (Version None)
Quarter: 2010Q2

REPORT INFORMATION
  Report Type: 
  Country: None (occurrence: None)
  Receive Date: 20100527
  Receipt Date: 20100527
  Transmission Date: 20101027
  Serious: No
  Sender: FDA-Public Use
  Company Number: None

PATIENT
  Sex: Female
  Weight: 58.0604 kg

DRUGS (1)
  1. ENBREL [Suspect]
     Indication: RHEUMATOID ARTHRITIS
     Dosage: 1 ML/50 MG 1X WK SUBQ. TUN
     Route: 058
     Dates: start: 20090901, end: 20091201

REACTIONS (2)
  - ECONOMIC PROBLEM [None]
  - LIVER FUNCTION TEST ABNORMAL [None]
